FAERS Safety Report 8605513-4 (Version None)
Quarter: 2012Q3

REPORT INFORMATION
  Report Type: 
  Country: None (occurrence: None)
  Receive Date: 20120820
  Receipt Date: 20111011
  Transmission Date: 20120928
  Serious: No
  Sender: FDA-Public Use
  Company Number: US-MYLANLABS-2011S1021320

PATIENT
  Sex: Female

DRUGS (4)
  1. ATIVAN [Suspect]
  2. LITHIUM CARBONATE [Suspect]
  3. COGENTIN [Suspect]
  4. TRIFLUOPERAZINE HCL [Suspect]

REACTIONS (1)
  - SALIVARY HYPERSECRETION [None]
